FAERS Safety Report 19071181 (Version 1)
Quarter: 2021Q1

REPORT INFORMATION
  Report Type: Spontaneous
  Country: DE (occurrence: DE)
  Receive Date: 20210330
  Receipt Date: 20210330
  Transmission Date: 20210420
  Serious: Yes (Other)
  Sender: FDA-Public Use
  Company Number: DE-SUN PHARMACEUTICAL INDUSTRIES LTD-2021RR-288308

PATIENT
  Age: 35 Year
  Sex: Female
  Weight: 49 kg

DRUGS (1)
  1. ISOTRETINOIN BASICS 20 MG WEICHKAPSELN [Suspect]
     Active Substance: ISOTRETINOIN
     Indication: PRODUCT USED FOR UNKNOWN INDICATION
     Dosage: 15 TABLETS, DAILY
     Route: 065
     Dates: start: 202102

REACTIONS (2)
  - Overdose [Unknown]
  - Arthralgia [Unknown]

NARRATIVE: CASE EVENT DATE: 202102
